FAERS Safety Report 8397542-3 (Version None)
Quarter: 2012Q2

REPORT INFORMATION
  Report Type: 
  Country: None (occurrence: None)
  Receive Date: 20120529
  Receipt Date: 20120529
  Transmission Date: 20120825
  Serious: Yes (Hospitalization, Disabling)
  Sender: FDA-Public Use
  Company Number: None

PATIENT
  Sex: Female
  Weight: 67.3 kg

DRUGS (1)
  1. ABILIFY [Suspect]
     Indication: DEPRESSION
     Dosage: 15 MG QHS PO TWO DOSES ONLY 7/19 AND 7/20
     Route: 048

REACTIONS (5)
  - CONTUSION [None]
  - SEDATION [None]
  - HAEMATOMA [None]
  - OEDEMA PERIPHERAL [None]
  - MENTAL IMPAIRMENT [None]
